FAERS Safety Report 18489595 (Version 1)
Quarter: 2020Q4

REPORT INFORMATION
  Report Type: Spontaneous
  Country: BR (occurrence: BR)
  Receive Date: 20201111
  Receipt Date: 20201111
  Transmission Date: 20210114
  Serious: Yes (Other)
  Sender: FDA-Public Use
  Company Number: BR-ROCHE-2711360

PATIENT
  Sex: Female
  Weight: 67.3 kg

DRUGS (10)
  1. DOCELIBBS [Suspect]
     Active Substance: DOCETAXEL
     Indication: BREAST CANCER
     Route: 042
     Dates: start: 20200828
  2. HYDROCHLOROTHIAZIDE. [Concomitant]
     Active Substance: HYDROCHLOROTHIAZIDE
  3. RIVOTRIL [Concomitant]
     Active Substance: CLONAZEPAM
  4. EMEND [Suspect]
     Active Substance: APREPITANT
     Indication: BREAST CANCER
     Route: 042
  5. PRESSAT [Concomitant]
     Active Substance: AMLODIPINE BESYLATE
  6. SIMVASTATIN. [Concomitant]
     Active Substance: SIMVASTATIN
  7. HERCEPTIN [Suspect]
     Active Substance: TRASTUZUMAB
     Indication: BREAST CANCER
     Route: 041
     Dates: start: 20200828
  8. ARADOIS [Concomitant]
     Active Substance: LOSARTAN POTASSIUM
  9. PERJETA [Suspect]
     Active Substance: PERTUZUMAB
     Indication: BREAST CANCER
     Route: 042
     Dates: start: 20200828
  10. FAULDCARBO [Suspect]
     Active Substance: CARBOPLATIN
     Indication: BREAST CANCER
     Route: 042
     Dates: start: 20200828

REACTIONS (1)
  - Phlebitis [Unknown]
